FAERS Safety Report 7659919-0 (Version None)
Quarter: 2011Q3

REPORT INFORMATION
  Report Type: 
  Country: None (occurrence: None)
  Receive Date: 20110805
  Receipt Date: 20110728
  Transmission Date: 20111222
  Serious: Yes (Other)
  Sender: FDA-Public Use
  Company Number: DE-PFIZER INC-2011105295

PATIENT
  Age: 74 Year
  Sex: Male

DRUGS (7)
  1. XALATAN [Suspect]
     Dosage: UNK
     Dates: end: 20090301
  2. TRAVOPROST AND TIMOLOL [Suspect]
     Dosage: UNK
     Dates: start: 20101001
  3. TRAVOPROST AND TIMOLOL [Suspect]
     Dosage: UNK
     Dates: start: 20101001
  4. AZOPT [Suspect]
     Dosage: UNK
     Dates: end: 20090301
  5. BIMATOPROST AND TIMOLOL MALEATE [Suspect]
     Dosage: UNK
     Dates: end: 20090301
  6. TAFLUPROST [Suspect]
     Dosage: UNK
     Dates: start: 20090301, end: 20101001
  7. COSOPT [Suspect]
     Dosage: UNK
     Dates: end: 20090301

REACTIONS (2)
  - PROSTATIC SPECIFIC ANTIGEN INCREASED [None]
  - PROSTATE CANCER [None]
